FAERS Safety Report 16220071 (Version 2)
Quarter: 2019Q4

REPORT INFORMATION
  Report Type: Report from Study
  Country: US (occurrence: US)
  Receive Date: 20190420
  Receipt Date: 20191007
  Transmission Date: 20200122
  Serious: Yes (Hospitalization)
  Sender: FDA-Public Use
  Company Number: US-009507513-1904USA008177

PATIENT
  Sex: Male

DRUGS (11)
  1. NASONEX [Suspect]
     Active Substance: MOMETASONE FUROATE
     Indication: HYPERSENSITIVITY
     Dosage: STRENGTH: 50 (UNITS NOT REPORTED), 2 PUFFS DAILY, SOMETIMES HAS TO USE 3 OR 4 PUFFS A DAY
     Route: 048
  2. NEXIUM [Concomitant]
     Active Substance: ESOMEPRAZOLE MAGNESIUM
  3. KLOR-CON [Concomitant]
     Active Substance: POTASSIUM CHLORIDE
  4. LIPITOR [Concomitant]
     Active Substance: ATORVASTATIN CALCIUM
  5. MOTRIN [Concomitant]
     Active Substance: IBUPROFEN
  6. AMLODIPINE [Concomitant]
     Active Substance: AMLODIPINE BESYLATE
  7. OXYCODONE [Concomitant]
     Active Substance: OXYCODONE
  8. ONDANSETRON [Concomitant]
     Active Substance: ONDANSETRON
  9. ELOCON [Concomitant]
     Active Substance: MOMETASONE FUROATE
  10. MOVANTIK [Concomitant]
     Active Substance: NALOXEGOL OXALATE
  11. METOPROLOL. [Concomitant]
     Active Substance: METOPROLOL

REACTIONS (6)
  - Epistaxis [Unknown]
  - Dyspnoea [Unknown]
  - Inappropriate schedule of product administration [Unknown]
  - Hypersensitivity [Not Recovered/Not Resolved]
  - Incorrect route of product administration [Unknown]
  - Product use in unapproved indication [Unknown]
